FAERS Safety Report 16552152 (Version 2)
Quarter: 2019Q3

REPORT INFORMATION
  Report Type: Report from Study
  Country: None (occurrence: US)
  Receive Date: 20190710
  Receipt Date: 20190712
  Transmission Date: 20191004
  Serious: Yes (Other)
  Sender: FDA-Public Use
  Company Number: US-ABBVIE-19K-163-2848143-00

PATIENT
  Age: 63 Year
  Sex: Female
  Weight: 81.72 kg

DRUGS (1)
  1. DUOPA [Suspect]
     Active Substance: CARBIDOPA\LEVODOPA
     Indication: PRODUCT USED FOR UNKNOWN INDICATION
     Route: 050
     Dates: start: 20180806, end: 20190515

REACTIONS (4)
  - Gastric ulcer [Not Recovered/Not Resolved]
  - Ankle operation [Recovered/Resolved]
  - Fall [Recovered/Resolved]
  - Device dislocation [Unknown]

NARRATIVE: CASE EVENT DATE: 20190509
